FAERS Safety Report 21483884 (Version 1)
Quarter: 2022Q4

REPORT INFORMATION
  Report Type: Report from Study
  Country: US (occurrence: US)
  Receive Date: 20221020
  Receipt Date: 20221020
  Transmission Date: 20230112
  Serious: Yes (Death, Hospitalization, Other)
  Sender: FDA-Public Use
  Company Number: US-SUN PHARMACEUTICAL INDUSTRIES LTD-2022R1-359902

PATIENT
  Age: 85 Year
  Sex: Female

DRUGS (2)
  1. CARBOPLATIN [Suspect]
     Active Substance: CARBOPLATIN
     Indication: Malignant neoplasm of renal pelvis
     Dosage: AUC 1.5, WEEKLY
     Route: 065
  2. PACLITAXEL [Suspect]
     Active Substance: PACLITAXEL
     Indication: Malignant neoplasm of renal pelvis
     Dosage: 40 MILLIGRAM/SQ. METER, WEEKLY
     Route: 065

REACTIONS (1)
  - Disease progression [Fatal]
